FAERS Safety Report 9498422 (Version 1)
Quarter: 2013Q3

REPORT INFORMATION
  Report Type: Spontaneous
  Country: US (occurrence: US)
  Receive Date: 20130904
  Receipt Date: 20130904
  Transmission Date: 20140515
  Serious: Yes (Hospitalization)
  Sender: FDA-Public Use
  Company Number: US-GLAXOSMITHKLINE-A1039718A

PATIENT
  Age: 40 Year
  Sex: Female

DRUGS (1)
  1. EPIVIR HBV [Suspect]
     Indication: CHRONIC HEPATITIS
     Dosage: 100MG UNKNOWN
     Route: 065
     Dates: start: 20100426

REACTIONS (1)
  - Hospitalisation [Not Recovered/Not Resolved]
